FAERS Safety Report 14320603 (Version 2)
Quarter: 2018Q1

REPORT INFORMATION
  Report Type: Spontaneous
  Country: JP (occurrence: JP)
  Receive Date: 20171222
  Receipt Date: 20180130
  Transmission Date: 20180509
  Serious: Yes (Death, Hospitalization)
  Sender: FDA-Public Use
  Company Number: JP-ROCHE-2043979

PATIENT
  Age: 50 Year
  Sex: Female
  Weight: 82 kg

DRUGS (3)
  1. HERCEPTIN [Suspect]
     Active Substance: TRASTUZUMAB
     Indication: BREAST CANCER
     Dosage: DOSAGE IS UNCERTAIN.
     Route: 041
     Dates: start: 20170405, end: 20170405
  2. PACLITAXEL. [Concomitant]
     Active Substance: PACLITAXEL
     Indication: BREAST CANCER
     Dosage: DOSAGE IS UNCERTAIN.
     Route: 041
     Dates: start: 20170405, end: 20170703
  3. HERCEPTIN [Suspect]
     Active Substance: TRASTUZUMAB
     Dosage: TEN TIMES DOSE INTERVAL UNCERTAINITY
     Route: 041
     Dates: start: 20160412, end: 20170626

REACTIONS (2)
  - Cardiac failure [Fatal]
  - Pyrexia [Unknown]

NARRATIVE: CASE EVENT DATE: 20170821
